FAERS Safety Report 17114035 (Version 2)
Quarter: 2019Q4

REPORT INFORMATION
  Report Type: Spontaneous
  Country: US (occurrence: US)
  Receive Date: 20191205
  Receipt Date: 20191205
  Transmission Date: 20200122
  Serious: No
  Sender: FDA-Public Use
  Company Number: US-UNICHEM PHARMACEUTICALS (USA) INC-UCM201902-000089

PATIENT
  Sex: Male

DRUGS (1)
  1. AMLODIPINE BESYLATE 2.5MG TABLETS USP [Suspect]
     Active Substance: AMLODIPINE BESYLATE
     Indication: BLOOD PRESSURE MEASUREMENT
     Route: 048

REACTIONS (3)
  - Abdominal discomfort [Unknown]
  - Medication error [Unknown]
  - Drug hypersensitivity [Unknown]
